FAERS Safety Report 25856551 (Version 1)
Quarter: 2025Q3

REPORT INFORMATION
  Report Type: Other
  Country: EU (occurrence: EU)
  Receive Date: 20250929
  Receipt Date: 20250929
  Transmission Date: 20251021
  Serious: Yes (Hospitalization)
  Sender: Atnahs Healthcare
  Company Number: None

PATIENT

DRUGS (2)
  1. DIAZEPAM [Suspect]
     Active Substance: DIAZEPAM
     Indication: Bipolar disorder
     Route: 048
     Dates: start: 20250430, end: 20250503
  2. ZOPICLONE [Suspect]
     Active Substance: ZOPICLONE
     Indication: Sleep disorder
     Route: 048
     Dates: start: 20250501, end: 20250503

REACTIONS (1)
  - AGEP-DRESS overlap [Recovering/Resolving]

NARRATIVE: CASE EVENT DATE: 20250503
